FAERS Safety Report 12105802 (Version 1)
Quarter: 2016Q1

REPORT INFORMATION
  Report Type: Spontaneous
  Country: None (occurrence: US)
  Receive Date: 20160223
  Receipt Date: 20160223
  Transmission Date: 20160526
  Serious: No
  Sender: FDA-Public Use
  Company Number: US-MATRIXX INITIATIVES, INC.-1048278

PATIENT
  Age: 59 Year
  Sex: Female
  Weight: 80.46 kg

DRUGS (1)
  1. ZICAM COLD REMEDY SWABS [Suspect]
     Active Substance: ZINC GLUCONATE
     Indication: NASOPHARYNGITIS
     Route: 045

REACTIONS (1)
  - Ageusia [Recovering/Resolving]
